FAERS Safety Report 8496834-7 (Version None)
Quarter: 2012Q3

REPORT INFORMATION
  Report Type: 
  Country: None (occurrence: None)
  Receive Date: 20120709
  Receipt Date: 20120628
  Transmission Date: 20120928
  Serious: Yes (Other)
  Sender: FDA-Public Use
  Company Number: US-BAXTER-2012BAX010173

PATIENT
  Sex: Male
  Weight: 20.91 kg

DRUGS (4)
  1. RECOMBINATE [Suspect]
     Indication: FACTOR VIII INHIBITION
     Route: 042
  2. NOVOSEVEN [Concomitant]
     Route: 042
  3. ADVATE [Suspect]
     Route: 042
  4. ADVATE [Suspect]
     Indication: IMMUNE TOLERANCE INDUCTION

REACTIONS (2)
  - DEVICE RELATED INFECTION [None]
  - FACTOR VIII INHIBITION [None]
